FAERS Safety Report 15632395 (Version 1)
Quarter: 2018Q4

REPORT INFORMATION
  Report Type: Spontaneous
  Country: GB (occurrence: GB)
  Receive Date: 20181119
  Receipt Date: 20181119
  Transmission Date: 20190205
  Serious: Yes (Other)
  Sender: FDA-Public Use
  Company Number: GB-JNJFOC-20181117513

PATIENT
  Age: 81 Year
  Sex: Male

DRUGS (2)
  1. RIVASTIGMINE. [Concomitant]
     Active Substance: RIVASTIGMINE
     Route: 065
  2. HALOPERIDOL. [Suspect]
     Active Substance: HALOPERIDOL
     Indication: HALLUCINATION
     Dosage: AT NIGHT
     Route: 048
     Dates: start: 20180529

REACTIONS (7)
  - Motor dysfunction [Unknown]
  - Somnolence [Unknown]
  - Miosis [Unknown]
  - Blood glucose fluctuation [Unknown]
  - Contraindicated product administered [Unknown]
  - Hyporesponsive to stimuli [Unknown]
  - Depressed level of consciousness [Unknown]

NARRATIVE: CASE EVENT DATE: 20180612
